FAERS Safety Report 15947986 (Version 2)
Quarter: 2019Q1

REPORT INFORMATION
  Report Type: Spontaneous
  Country: GB (occurrence: GB)
  Receive Date: 20190211
  Receipt Date: 20190308
  Transmission Date: 20190417
  Serious: Yes (Hospitalization)
  Sender: FDA-Public Use
  Company Number: PHHY2019GB027488

PATIENT
  Sex: Female

DRUGS (14)
  1. ZOLEDRONIC ACID [Concomitant]
     Active Substance: ZOLEDRONIC ACID
     Indication: OSTEOPOROSIS
     Dosage: 5 MG, UNK
     Route: 042
     Dates: start: 20170203
  2. ALENDRONIC ACID [Concomitant]
     Active Substance: ALENDRONIC ACID
     Indication: OSTEOPOROSIS
     Dosage: 70 MG, UNK
     Route: 065
     Dates: start: 20160821, end: 201611
  3. ADCAL D3 [Concomitant]
     Active Substance: CALCIUM CARBONATE\CHOLECALCIFEROL
     Indication: PRODUCT USED FOR UNKNOWN INDICATION
     Dosage: 1.5 G, UNK
     Route: 048
  4. TRASTUZUMAB. [Suspect]
     Active Substance: TRASTUZUMAB
     Indication: BREAST CANCER METASTATIC
     Dosage: 620 MG, (LOADING DOSE MOST RECENT DOSE PRIOR TO SAE)
     Route: 042
  5. TRASTUZUMAB. [Suspect]
     Active Substance: TRASTUZUMAB
     Dosage: 6 MG/KG, Q3W (MAINTENANCE DOSE)
     Route: 042
     Dates: start: 20151102
  6. PERTUZUMAB. [Suspect]
     Active Substance: PERTUZUMAB
     Indication: BREAST CANCER METASTATIC
     Dosage: 840 MG, (LOADING DOSE)
     Route: 042
  7. DOCETAXEL. [Suspect]
     Active Substance: DOCETAXEL
     Indication: BREAST CANCER METASTATIC
     Dosage: 130 MG, Q3W
     Route: 042
     Dates: start: 20151013, end: 20151013
  8. PERTUZUMAB. [Suspect]
     Active Substance: PERTUZUMAB
     Dosage: 420 MG, Q3W
     Route: 042
     Dates: start: 20151102
  9. LOPERAMIDE HYDROCHLORIDE. [Concomitant]
     Active Substance: LOPERAMIDE HYDROCHLORIDE
     Indication: PRODUCT USED FOR UNKNOWN INDICATION
     Dosage: 2 MG, UNK
     Route: 048
  10. DESUNIN [Concomitant]
     Active Substance: CHOLECALCIFEROL
     Indication: OSTEOPOROSIS
     Dosage: 800 IU, QD
     Route: 048
     Dates: start: 20160821, end: 201611
  11. DESUNIN [Concomitant]
     Active Substance: CHOLECALCIFEROL
     Dosage: 1 OT, QD
     Route: 048
     Dates: start: 20170203
  12. RISEDRONIC ACID [Concomitant]
     Active Substance: RISEDRONIC ACID
     Indication: PRODUCT USED FOR UNKNOWN INDICATION
     Dosage: 35 G, UNK
     Route: 048
  13. PACLITAXEL. [Suspect]
     Active Substance: PACLITAXEL
     Indication: BREAST CANCER METASTATIC
     Dosage: 140 MG, UNK
     Route: 042
  14. PARACETAMOL [Concomitant]
     Active Substance: ACETAMINOPHEN
     Indication: PRODUCT USED FOR UNKNOWN INDICATION
     Dosage: 500 MG, UNK (PREMEDICATION)
     Route: 048

REACTIONS (10)
  - Febrile neutropenia [Recovered/Resolved]
  - Mouth ulceration [Not Recovered/Not Resolved]
  - Rib fracture [Recovered/Resolved]
  - Appendicitis [Recovered/Resolved]
  - Mouth ulceration [Recovered/Resolved]
  - Rash [Recovered/Resolved]
  - Lower respiratory tract infection [Recovered/Resolved]
  - Musculoskeletal chest pain [Not Recovered/Not Resolved]
  - Urinary tract infection [Recovered/Resolved]
  - Neuropathy peripheral [Recovering/Resolving]

NARRATIVE: CASE EVENT DATE: 20151021
